FAERS Safety Report 4570765-7 (Version None)
Quarter: 2005Q1

REPORT INFORMATION
  Report Type: 
  Country: None (occurrence: None)
  Receive Date: 20050202
  Receipt Date: 20050118
  Transmission Date: 20050727
  Serious: Yes (Other)
  Sender: FDA-Public Use
  Company Number: GBS041216120

PATIENT
  Sex: Male

DRUGS (1)
  1. XIGRIS [Suspect]
     Dates: start: 20041203

REACTIONS (1)
  - THROMBOCYTOPENIA [None]
